FAERS Safety Report 8296588-3 (Version None)
Quarter: 2012Q2

REPORT INFORMATION
  Report Type: 
  Country: None (occurrence: None)
  Receive Date: 20120418
  Receipt Date: 20120418
  Transmission Date: 20120825
  Serious: Yes (Other)
  Sender: FDA-Public Use
  Company Number: None

PATIENT

DRUGS (2)
  1. LATUDA [Suspect]
     Indication: SCHIZOPHRENIA
     Dates: start: 20111116, end: 20120401
  2. LATUDA [Suspect]
     Indication: SCHIZOAFFECTIVE DISORDER
     Dates: start: 20111116, end: 20120401

REACTIONS (1)
  - TARDIVE DYSKINESIA [None]
